FAERS Safety Report 8081543-9 (Version None)
Quarter: 2012Q1

REPORT INFORMATION
  Report Type: 
  Country: None (occurrence: None)
  Receive Date: 20120130
  Receipt Date: 20120117
  Transmission Date: 20120608
  Serious: Yes (Hospitalization)
  Sender: FDA-Public Use
  Company Number: DE-ROCHE-796861

PATIENT
  Sex: Male

DRUGS (23)
  1. TORSEMIDE [Suspect]
     Indication: PRODUCT USED FOR UNKNOWN INDICATION
     Route: 065
     Dates: start: 20100108, end: 20110509
  2. AMLODIPINE [Concomitant]
  3. EZETIMIBE [Concomitant]
     Dosage: 10/40MG DAILY
  4. DIOVAN [Concomitant]
     Dates: start: 20110108, end: 20110317
  5. AMLODIPINE [Concomitant]
     Dates: start: 20100108, end: 20110315
  6. VILDAGLIPTIN [Concomitant]
  7. HYDROCHLOROTHIAZIDE [Concomitant]
  8. NITROLINGUAL [Concomitant]
     Dosage: FREQUENCY: AS REQUIRED
  9. PANTOPRAZOLE [Concomitant]
  10. LEVEMIR [Concomitant]
     Dosage: REPORTED AS LEVEMIR INSULIN
  11. ASPIRIN [Concomitant]
  12. CLOPIDOGREL [Concomitant]
  13. METFFORMIN HYDROCHLORIDE [Concomitant]
     Dates: start: 20100213, end: 20110311
  14. ALISKIREN [Concomitant]
  15. CATAPRES [Concomitant]
  16. BLINDED ALEGLITAZAR [Suspect]
     Indication: CARDIOVASCULAR EVENT PROPHYLAXIS
     Dosage: LAST DOSE PRIOR TO HYPERKALAEMIA: 04/JUL/2011, HYPERTENSIVE CRISIS: 11/AUG/2011
     Route: 048
  17. LIPROLOG [Concomitant]
  18. NEBIVOLOL HCL [Concomitant]
  19. ALLOPURINOL [Concomitant]
  20. DIOVAN [Concomitant]
  21. SPIRONOLACTONE [Suspect]
     Indication: PRODUCT USED FOR UNKNOWN INDICATION
  22. OMEGA-3-ACID ETHYL ESTERS [Concomitant]
     Dates: start: 20110312, end: 20110509
  23. NITROLINGUAL [Concomitant]
     Dosage: 4 PUFF SINGLE DOSE
     Dates: start: 20111120, end: 20111120

REACTIONS (3)
  - HYPERKALAEMIA [None]
  - CAROTID ARTERY STENOSIS [None]
  - HYPERTENSIVE CRISIS [None]
